FAERS Safety Report 9339346 (Version 3)
Quarter: 2013Q3

REPORT INFORMATION
  Report Type: Spontaneous
  Country: JP (occurrence: JP)
  Receive Date: 20130610
  Receipt Date: 20130710
  Transmission Date: 20140515
  Serious: Yes (Death)
  Sender: FDA-Public Use
  Company Number: JP-UCBSA-087669

PATIENT
  Age: 82 Year
  Sex: Male
  Weight: 58 kg

DRUGS (8)
  1. CIMZIA [Suspect]
     Indication: RHEUMATOID ARTHRITIS
     Route: 058
     Dates: start: 20130314, end: 20130507
  2. RIMATIL [Concomitant]
     Indication: RHEUMATOID ARTHRITIS
     Dosage: DAILY DOSE: 300 MG
     Route: 048
     Dates: start: 20130409, end: 2013
  3. AZULFIDINE [Concomitant]
     Indication: RHEUMATOID ARTHRITIS
     Dosage: DAILY DOSE: 1000 MG
     Route: 048
     Dates: start: 20130130, end: 2013
  4. RHEUMATREX [Concomitant]
     Indication: RHEUMATOID ARTHRITIS
     Dosage: DOSE: 6 MG/WEEK
     Route: 048
     Dates: start: 20130507, end: 2013
  5. PREDNISOLONE [Concomitant]
     Indication: RHEUMATOID ARTHRITIS
     Dosage: DIALY DOSE: 10 MG
     Route: 048
     Dates: start: 20121018
  6. FOLIAMIN [Concomitant]
     Indication: PROPHYLAXIS
     Dosage: DAILY DOSE: 5 MG
     Route: 048
     Dates: start: 20130507
  7. MAGNESIUM OXIDE [Concomitant]
     Indication: CONSTIPATION
     Dosage: DAILY DOSE: 1500 MG
     Route: 048
     Dates: start: 20130214
  8. INSULIN [Concomitant]
     Indication: DIABETES MELLITUS
     Dosage: UNKNOWN DOSE
     Route: 058

REACTIONS (1)
  - Cardio-respiratory arrest [Fatal]
